FAERS Safety Report 14693441 (Version 1)
Quarter: 2018Q1

REPORT INFORMATION
  Report Type: Spontaneous
  Country: US (occurrence: US)
  Receive Date: 20180329
  Receipt Date: 20180329
  Transmission Date: 20180509
  Serious: Yes (Hospitalization, Other)
  Sender: FDA-Public Use
  Company Number: US-JNJFOC-20180335033

PATIENT
  Age: 43 Year
  Sex: Female

DRUGS (3)
  1. INVOKANA [Suspect]
     Active Substance: CANAGLIFLOZIN
     Indication: DIABETES MELLITUS
     Route: 048
     Dates: start: 20160908, end: 20161218
  2. INVOKANA [Suspect]
     Active Substance: CANAGLIFLOZIN
     Indication: DIABETES MELLITUS
     Route: 048
     Dates: start: 20171104, end: 20171203
  3. INVOKANA [Suspect]
     Active Substance: CANAGLIFLOZIN
     Indication: DIABETES MELLITUS
     Route: 048
     Dates: start: 20170227, end: 20170713

REACTIONS (11)
  - Debridement [Recovering/Resolving]
  - Foot amputation [Recovering/Resolving]
  - Pyelonephritis acute [Recovering/Resolving]
  - Cellulitis [Recovering/Resolving]
  - Tendonitis [Recovering/Resolving]
  - Ingrowing nail [Recovering/Resolving]
  - Sepsis [Recovering/Resolving]
  - Diabetic ketoacidosis [Recovering/Resolving]
  - Gangrene [Recovering/Resolving]
  - Toe amputation [Recovering/Resolving]
  - Osteoarthritis [Recovering/Resolving]

NARRATIVE: CASE EVENT DATE: 201705
